FAERS Safety Report 6229705-7 (Version None)
Quarter: 2009Q2

REPORT INFORMATION
  Report Type: 
  Country: None (occurrence: None)
  Receive Date: 20090615
  Receipt Date: 20090603
  Transmission Date: 20091009
  Serious: Yes (Other)
  Sender: FDA-Public Use
  Company Number: JP-MERCK-0905USA03456

PATIENT
  Age: 82 Year
  Sex: Female
  Weight: 45 kg

DRUGS (10)
  1. FOSAMAX [Suspect]
     Indication: SPINAL COMPRESSION FRACTURE
     Route: 048
     Dates: start: 20070511, end: 20090329
  2. TANATRIL [Concomitant]
     Route: 048
  3. HYGROTON [Concomitant]
     Route: 048
  4. THEOLONG [Concomitant]
     Route: 048
  5. MUCOSAL [Concomitant]
     Route: 048
  6. MEVAN [Concomitant]
     Route: 048
  7. MICARDIS [Concomitant]
     Route: 048
  8. AMOBAN [Concomitant]
     Route: 048
  9. PULMICORT-100 [Concomitant]
  10. LEBELBON [Concomitant]
     Route: 048

REACTIONS (2)
  - COCCYDYNIA [None]
  - RETINAL HAEMORRHAGE [None]
